FAERS Safety Report 5429993-0 (Version None)
Quarter: 2007Q3

REPORT INFORMATION
  Report Type: 
  Country: None (occurrence: None)
  Receive Date: 20070829
  Receipt Date: 20070321
  Transmission Date: 20080115
  Serious: No
  Sender: FDA-Public Use
  Company Number: US-BOEHRINGER INGELHEIM PHARMACEUTICALS, INC.-2006-BP-03659BP

PATIENT
  Sex: Male

DRUGS (15)
  1. MIRAPEX [Suspect]
     Indication: RESTLESS LEGS SYNDROME
     Route: 048
     Dates: start: 20000714, end: 20060104
  2. MOTRIX [Concomitant]
     Dates: start: 20010516
  3. LUPRON [Concomitant]
     Indication: HORMONE THERAPY
     Dates: start: 20000608, end: 20070301
  4. CENTRUM [Concomitant]
     Indication: VITAMIN SUPPLEMENTATION
     Route: 048
     Dates: start: 19970101
  5. CASODEX [Concomitant]
     Indication: HORMONE THERAPY
     Route: 048
     Dates: start: 20030908, end: 20070206
  6. ASPIRIN [Concomitant]
     Route: 048
     Dates: start: 20020415
  7. VITAMIN B-12 [Concomitant]
     Dates: start: 20020415
  8. OXYCODONE HCL [Concomitant]
     Indication: RESTLESS LEGS SYNDROME
     Dates: start: 20060104
  9. NEURONTIN [Concomitant]
     Indication: RESTLESS LEGS SYNDROME
     Route: 048
     Dates: start: 20060412
  10. SELENIUM SULFIDE [Concomitant]
  11. CO Q 10 [Concomitant]
     Dates: start: 20060601
  12. FISH OIL [Concomitant]
     Dates: start: 20060601
  13. VITAMIN E [Concomitant]
     Dates: start: 20040220
  14. VITAMIN CAP [Concomitant]
     Dates: start: 20040920
  15. EFFEXOR XR [Concomitant]
     Indication: DEPRESSION
     Route: 048
     Dates: start: 20060901

REACTIONS (5)
  - ANXIETY [None]
  - DEPRESSION [None]
  - MAJOR DEPRESSION [None]
  - PATHOLOGICAL GAMBLING [None]
  - SEASONAL AFFECTIVE DISORDER [None]
